FAERS Safety Report 5356639-2 (Version None)
Quarter: 2007Q2

REPORT INFORMATION
  Report Type: 
  Country: None (occurrence: None)
  Receive Date: 20070614
  Receipt Date: 20070605
  Transmission Date: 20071010
  Serious: Yes (Hospitalization, Other)
  Sender: FDA-Public Use
  Company Number: PHBS2007BR09344

PATIENT
  Age: 6 Year
  Sex: Female
  Weight: 30 kg

DRUGS (3)
  1. RITALIN [Suspect]
     Indication: DISTURBANCE IN ATTENTION
     Dosage: 10 MG/DAY
     Route: 048
     Dates: start: 20070101
  2. NEULEPTIL [Concomitant]
     Dosage: 15 DROPS BEFORE SLEEPING
     Route: 048
  3. RISPERIDONE [Concomitant]
     Dosage: 0.5 DF, BID
     Route: 048

REACTIONS (9)
  - ANOREXIA [None]
  - BLISTER [None]
  - COUGH [None]
  - CRANIOTOMY [None]
  - DISTURBANCE IN ATTENTION [None]
  - FALL [None]
  - INSOMNIA [None]
  - PRODUCTIVE COUGH [None]
  - SECRETION DISCHARGE [None]
